FAERS Safety Report 4819483-8 (Version None)
Quarter: 2005Q4

REPORT INFORMATION
  Report Type: 
  Country: None (occurrence: None)
  Receive Date: 20051031
  Receipt Date: 20050707
  Transmission Date: 20060501
  Serious: No
  Sender: FDA-Public Use
  Company Number: 2005PV000295

PATIENT
  Age: 46 Year
  Sex: Female
  Weight: 61.2356 kg

DRUGS (13)
  1. SYMLIN [Suspect]
     Indication: DIABETES MELLITUS INSULIN-DEPENDENT
     Dosage: 60 UG; TID; SC
     Route: 058
     Dates: start: 20050101
  2. HUMALOG [Concomitant]
  3. NOVOLOG [Concomitant]
  4. DIFLUCAN [Concomitant]
  5. OTC LO [Concomitant]
  6. ZELNORM [Concomitant]
  7. SYNTHROID [Concomitant]
  8. FOSAMAX [Concomitant]
  9. PRILOSEC [Concomitant]
  10. ZYRTEC [Concomitant]
  11. METHOTREXATE [Concomitant]
  12. SPIRONOLACTONE [Concomitant]
  13. ALTACE [Concomitant]

REACTIONS (8)
  - BLOOD GLUCOSE FLUCTUATION [None]
  - BLOOD URINE [None]
  - CONSTIPATION [None]
  - CYSTITIS [None]
  - FLANK PAIN [None]
  - NAUSEA [None]
  - NEPHROLITHIASIS [None]
  - SINUSITIS [None]
